FAERS Safety Report 23155509 (Version 1)
Quarter: 2023Q4

REPORT INFORMATION
  Report Type: Spontaneous
  Country: US (occurrence: US)
  Receive Date: 20231107
  Receipt Date: 20231107
  Transmission Date: 20240109
  Serious: No
  Sender: FDA-Public Use
  Company Number: US-SA-SAC20231030000284

PATIENT
  Sex: Female
  Weight: 49.8 kg

DRUGS (2)
  1. DUPIXENT [Suspect]
     Active Substance: DUPILUMAB
     Dosage: 300 MG
     Route: 058
  2. IRON [Concomitant]
     Active Substance: IRON
     Dosage: UNK
     Dates: start: 2023

REACTIONS (1)
  - Inappropriate schedule of product administration [Unknown]
